FAERS Safety Report 6216780-9 (Version None)
Quarter: 2009Q2

REPORT INFORMATION
  Report Type: 
  Country: None (occurrence: None)
  Receive Date: 20090603
  Receipt Date: 20090603
  Transmission Date: 20091009
  Serious: Yes (Other)
  Sender: FDA-Public Use
  Company Number: None

PATIENT
  Age: 72 Year
  Sex: Female

DRUGS (1)
  1. TARCEVA [Suspect]
     Indication: LUNG NEOPLASM MALIGNANT
     Dosage: 150MG DAILY (X1) 047
     Dates: start: 20090513, end: 20090526

REACTIONS (6)
  - DIARRHOEA [None]
  - DYSPEPSIA [None]
  - EYE IRRITATION [None]
  - NAUSEA [None]
  - STOMATITIS [None]
  - VULVOVAGINAL BURNING SENSATION [None]
